FAERS Safety Report 5678387-1 (Version None)
Quarter: 2008Q1

REPORT INFORMATION
  Report Type: 
  Country: None (occurrence: None)
  Receive Date: 20080320
  Receipt Date: 20080317
  Transmission Date: 20080703
  Serious: Yes (Death, Other)
  Sender: FDA-Public Use
  Company Number: 151-21880-08030996

PATIENT
  Sex: Female

DRUGS (3)
  1. REVLIMID [Suspect]
     Indication: 5Q-SYNDROME
     Dosage: 10 MG, ORAL
     Route: 048
     Dates: start: 20070801
  2. REVLIMID [Suspect]
     Indication: ACUTE MYELOID LEUKAEMIA
     Dosage: 10 MG, ORAL
     Route: 048
     Dates: start: 20070801
  3. ANTIBIOTIC (ANTIBIOTICS) [Concomitant]

REACTIONS (1)
  - INFLAMMATION [None]
